FAERS Safety Report 15126406 (Version 2)
Quarter: 2019Q1

REPORT INFORMATION
  Report Type: Spontaneous
  Country: US (occurrence: US)
  Receive Date: 20180710
  Receipt Date: 20190130
  Transmission Date: 20190417
  Serious: Yes (Hospitalization)
  Sender: FDA-Public Use
  Company Number: US-OTSUKA-2018_016047

PATIENT
  Age: 39 Year
  Sex: Male

DRUGS (7)
  1. ABILIFY [Suspect]
     Active Substance: ARIPIPRAZOLE
     Indication: BIPOLAR DISORDER
     Dosage: 15 MG, QD
     Route: 065
     Dates: start: 20140701, end: 2016
  2. BUSPAR [Concomitant]
     Active Substance: BUSPIRONE HYDROCHLORIDE
     Indication: PRODUCT USED FOR UNKNOWN INDICATION
     Dosage: 20 MG, UNK
     Route: 048
     Dates: start: 20141211
  3. BUSPAR [Concomitant]
     Active Substance: BUSPIRONE HYDROCHLORIDE
     Dosage: 5 MG, UNK
     Route: 048
     Dates: start: 20141218
  4. MYLANTA [Concomitant]
     Active Substance: ALUMINUM HYDROXIDE\DIMETHICONE\MAGNESIUM HYDROXIDE
     Indication: DYSPEPSIA
     Dosage: 1 EA*30ML/EA PRN 2 HOURS (MAX 4 DOSES IN 24 HOURS)
     Route: 048
     Dates: start: 20141214, end: 20141219
  5. MOTRIN [Concomitant]
     Active Substance: IBUPROFEN
     Indication: PAIN
     Dosage: 2 DF, PRN (MAX 4 DOSES/ 24 HOURS)
     Route: 048
     Dates: start: 20141214, end: 20141219
  6. MILK OF MAGNESIA [Concomitant]
     Active Substance: MAGNESIUM HYDROXIDE
     Indication: CONSTIPATION
     Dosage: 1 EA*30ML/EA PRN 2 HOURS (MAX 1 DOSES IN 24 HOURS)
     Route: 048
     Dates: start: 20141214, end: 20141219
  7. ABILIFY [Suspect]
     Active Substance: ARIPIPRAZOLE
     Dosage: 10 MG, QD (QHS)
     Route: 048
     Dates: start: 20141211

REACTIONS (15)
  - Anger [Unknown]
  - Divorced [Unknown]
  - Decreased interest [Unknown]
  - Sexual dysfunction [Not Recovered/Not Resolved]
  - Gambling disorder [Recovered/Resolved]
  - Compulsive sexual behaviour [Not Recovered/Not Resolved]
  - Economic problem [Unknown]
  - Helplessness [Unknown]
  - Irritability [Unknown]
  - Mental disorder [Unknown]
  - Dizziness [Unknown]
  - Compulsive shopping [Not Recovered/Not Resolved]
  - Obsessive-compulsive disorder [Unknown]
  - Disturbance in attention [Unknown]
  - Social avoidant behaviour [Unknown]

NARRATIVE: CASE EVENT DATE: 20140701
